FAERS Safety Report 16970155 (Version 2)
Quarter: 2019Q4

REPORT INFORMATION
  Report Type: Report from Study
  Country: US (occurrence: US)
  Receive Date: 20191029
  Receipt Date: 20191129
  Transmission Date: 20200122
  Serious: Yes (Other)
  Sender: FDA-Public Use
  Company Number: NVSC2019US018694

PATIENT
  Age: 55 Year
  Sex: Female

DRUGS (1)
  1. COSENTYX [Suspect]
     Active Substance: SECUKINUMAB
     Indication: PSORIASIS
     Dosage: 300 MG (300 MG (2 PENS) SUBCUTANEOUSLY AT WEEK 4, THEN 300 MG (2 PENS) EVERY 4 WEEKS THEREAFTER)
     Route: 058

REACTIONS (2)
  - Pneumonia [Unknown]
  - Arthritis [Unknown]
